FAERS Safety Report 18096043 (Version 22)
Quarter: 2021Q3

REPORT INFORMATION
  Report Type: Spontaneous
  Country: CA (occurrence: CA)
  Receive Date: 20200731
  Receipt Date: 20210928
  Transmission Date: 20211014
  Serious: Yes (Hospitalization, Other)
  Sender: FDA-Public Use
  Company Number: CA-CELLTRION INC.-2020CA024818

PATIENT

DRUGS (16)
  1. INFLECTRA [Suspect]
     Active Substance: INFLIXIMAB-DYYB
     Dosage: 10 MG/KG, EVERY 6 WEEKS
     Route: 042
     Dates: start: 20210217
  2. INFLECTRA [Suspect]
     Active Substance: INFLIXIMAB-DYYB
     Dosage: 10 MG/KG, EVERY 6 WEEKS
     Route: 042
     Dates: start: 20210609
  3. INFLECTRA [Suspect]
     Active Substance: INFLIXIMAB-DYYB
     Dosage: 300 MG, 0, 2, 6 THEN EVERY 8 WEEKS (Q 2 WEEK DOSE)
     Route: 042
     Dates: start: 20200723
  4. INFLECTRA [Suspect]
     Active Substance: INFLIXIMAB-DYYB
     Indication: COLITIS ULCERATIVE
     Dosage: 300 MG, 0, 2, 6 THEN EVERY 8 WEEKS (Q 0 WEEK DOSE)
     Route: 042
     Dates: start: 20200707, end: 20200822
  5. INFLECTRA [Suspect]
     Active Substance: INFLIXIMAB-DYYB
     Dosage: 10 MG/KG, EVERY 6 WEEKS
     Route: 042
     Dates: start: 20210106
  6. INFLECTRA [Suspect]
     Active Substance: INFLIXIMAB-DYYB
     Dosage: 300 MG (RESCUE DOSE)
     Route: 042
     Dates: start: 20200918, end: 20200918
  7. INFLECTRA [Suspect]
     Active Substance: INFLIXIMAB-DYYB
     Dosage: 300 MG, EVERY 8 WEEKS
     Route: 042
     Dates: start: 20201016
  8. INFLECTRA [Suspect]
     Active Substance: INFLIXIMAB-DYYB
     Dosage: 10 MG/KG, EVERY 6 WEEKS (600MG)
     Route: 042
     Dates: start: 20201126, end: 20210217
  9. INFLECTRA [Suspect]
     Active Substance: INFLIXIMAB-DYYB
     Dosage: 600 MG, EVERY 4 WEEKS
     Route: 042
     Dates: start: 20210803
  10. INFLECTRA [Suspect]
     Active Substance: INFLIXIMAB-DYYB
     Dosage: 600 MG, EVERY 4 WEEKS
     Route: 042
     Dates: start: 20210831
  11. INFLECTRA [Suspect]
     Active Substance: INFLIXIMAB-DYYB
     Dosage: 300 MG, 0, 2, 6 THEN EVERY 8 WEEKS (Q 6 WEEK DOSE)
     Route: 042
     Dates: start: 20200822, end: 20200822
  12. INFLECTRA [Suspect]
     Active Substance: INFLIXIMAB-DYYB
     Dosage: 600 MG, EVERY 4 WEEKS
     Route: 042
     Dates: start: 20210708
  13. INFLECTRA [Suspect]
     Active Substance: INFLIXIMAB-DYYB
     Dosage: 600 MG, EVERY 4 WEEKS
     Route: 042
     Dates: start: 20210319
  14. INFLECTRA [Suspect]
     Active Substance: INFLIXIMAB-DYYB
     Dosage: 10 MG/KG, EVERY 6 WEEKS
     Route: 042
     Dates: start: 20210512
  15. PREDNISONE. [Concomitant]
     Active Substance: PREDNISONE
     Dosage: 40 MG (TAPERING)
     Route: 048
  16. METHOTREXATE. [Concomitant]
     Active Substance: METHOTREXATE
     Dosage: UNK

REACTIONS (14)
  - Faecal calprotectin increased [Recovering/Resolving]
  - Intentional product use issue [Unknown]
  - Condition aggravated [Recovering/Resolving]
  - Blood pressure decreased [Recovered/Resolved]
  - Off label use [Unknown]
  - Drug level below therapeutic [Unknown]
  - Blood pressure diastolic decreased [Unknown]
  - Drug level above therapeutic [Unknown]
  - Off label use [Unknown]
  - Visual impairment [Recovered/Resolved]
  - Syncope [Recovered/Resolved]
  - Bacterial infection [Unknown]
  - C-reactive protein increased [Not Recovered/Not Resolved]
  - Inappropriate schedule of product administration [Unknown]

NARRATIVE: CASE EVENT DATE: 20200723
